FAERS Safety Report 20182410 (Version 8)
Quarter: 2022Q1

REPORT INFORMATION
  Report Type: Spontaneous
  Country: GB (occurrence: GB)
  Receive Date: 20211214
  Receipt Date: 20220310
  Transmission Date: 20220423
  Serious: Yes (Hospitalization, Other)
  Sender: FDA-Public Use
  Company Number: GB-PFIZER INC-2020452652

PATIENT
  Age: 81 Year
  Sex: Female

DRUGS (3)
  1. LIPITOR [Suspect]
     Active Substance: ATORVASTATIN CALCIUM
     Dosage: UNK
  2. NEXIUM I.V. [Concomitant]
     Active Substance: ESOMEPRAZOLE SODIUM
     Dosage: UNK
  3. CALCIUM [Concomitant]
     Active Substance: CALCIUM
     Dosage: UNK

REACTIONS (13)
  - Hypertension [Recovered/Resolved]
  - Syncope [Unknown]
  - Lower respiratory tract infection [Unknown]
  - Dizziness [Unknown]
  - Blood pressure abnormal [Unknown]
  - Heart rate decreased [Unknown]
  - Heart rate irregular [Unknown]
  - Fatigue [Unknown]
  - Dyspnoea [Unknown]
  - Giant cell arteritis [Unknown]
  - Dry eye [Unknown]
  - Vertigo [Unknown]
  - Head discomfort [Unknown]
